FAERS Safety Report 11466922 (Version 2)
Quarter: 2015Q3

REPORT INFORMATION
  Report Type: Spontaneous
  Country: US (occurrence: US)
  Receive Date: 20150908
  Receipt Date: 20150925
  Transmission Date: 20151125
  Serious: Yes (Hospitalization, Other)
  Sender: FDA-Public Use
  Company Number: US-CIPLA LTD.-2015US07005

PATIENT

DRUGS (3)
  1. AMLODIPINE [Suspect]
     Active Substance: AMLODIPINE BESYLATE
     Dosage: UNK MG, UNK
     Route: 042
  2. VALSARTAN. [Suspect]
     Active Substance: VALSARTAN
     Dosage: UNK MG, UNK
     Route: 042
  3. ATENOLOL. [Suspect]
     Active Substance: ATENOLOL
     Dosage: UNK MG, UNK
     Route: 042

REACTIONS (8)
  - Renal failure [Recovering/Resolving]
  - Overdose [Unknown]
  - Oliguria [Recovering/Resolving]
  - Pulmonary oedema [Recovering/Resolving]
  - Haemodynamic instability [Recovering/Resolving]
  - Poisoning [Recovering/Resolving]
  - Lactic acidosis [Recovering/Resolving]
  - Shock [Recovering/Resolving]
